FAERS Safety Report 12367558 (Version 3)
Quarter: 2017Q1

REPORT INFORMATION
  Report Type: Report from Study
  Country: JP (occurrence: JP)
  Receive Date: 20160513
  Receipt Date: 20170216
  Transmission Date: 20170428
  Serious: Yes (Hospitalization, Other)
  Sender: FDA-Public Use
  Company Number: JP-AMGEN-JPNNI2016061856

PATIENT
  Age: 45 Year
  Sex: Male
  Weight: 53 kg

DRUGS (13)
  1. CARBOPLATIN. [Suspect]
     Active Substance: CARBOPLATIN
     Indication: MALIGNANT NEOPLASM OF THYMUS
     Dosage: UNK
     Route: 041
  2. LANSOPRAZOLE. [Concomitant]
     Active Substance: LANSOPRAZOLE
     Dosage: UNK
     Route: 048
  3. PEGFILGRASTIM [Suspect]
     Active Substance: PEGFILGRASTIM
     Dosage: 3.6 MG, UNK
     Route: 058
     Dates: start: 20160225, end: 20160225
  4. ABRAXANE [Suspect]
     Active Substance: PACLITAXEL
     Dosage: 160 MG, UNK
     Route: 041
     Dates: start: 20160113, end: 20160127
  5. ABRAXANE [Suspect]
     Active Substance: PACLITAXEL
     Dosage: 160 MG, UNK
     Route: 041
     Dates: start: 20160217, end: 20160302
  6. ABRAXANE [Suspect]
     Active Substance: PACLITAXEL
     Dosage: UNK
     Route: 041
  7. CARBOPLATIN. [Suspect]
     Active Substance: CARBOPLATIN
     Dosage: 700 MG, UNK
     Route: 041
     Dates: start: 20160113, end: 20160113
  8. ABRAXANE [Suspect]
     Active Substance: PACLITAXEL
     Dosage: UNK
     Route: 041
  9. PEGFILGRASTIM [Suspect]
     Active Substance: PEGFILGRASTIM
     Indication: COLONY STIMULATING FACTOR PROPHYLAXIS
     Dosage: 3.6 MG, UNK
     Route: 058
     Dates: start: 20160121, end: 20160121
  10. CARBOPLATIN. [Suspect]
     Active Substance: CARBOPLATIN
     Dosage: UNK
     Route: 041
  11. CARBOPLATIN. [Suspect]
     Active Substance: CARBOPLATIN
     Dosage: UNK
     Route: 041
  12. CARBOPLATIN. [Suspect]
     Active Substance: CARBOPLATIN
     Dosage: 700 MG, UNK
     Route: 041
     Dates: start: 20160217, end: 20160217
  13. ABRAXANE [Suspect]
     Active Substance: PACLITAXEL
     Indication: MALIGNANT NEOPLASM OF THYMUS
     Dosage: UNK
     Route: 041

REACTIONS (2)
  - Chemotherapy [Unknown]
  - Febrile neutropenia [Recovered/Resolved]

NARRATIVE: CASE EVENT DATE: 20160201
